FAERS Safety Report 17287829 (Version 2)
Quarter: 2020Q1

REPORT INFORMATION
  Report Type: Spontaneous
  Country: IT (occurrence: IT)
  Receive Date: 20200120
  Receipt Date: 20200331
  Transmission Date: 20200409
  Serious: Yes (Hospitalization)
  Sender: FDA-Public Use
  Company Number: IT-TEVA-2020-IT-1169474

PATIENT
  Age: 75 Year
  Sex: Male

DRUGS (2)
  1. DOXAZOSINA SANDOZ [Suspect]
     Active Substance: DOXAZOSIN MESYLATE
     Indication: AORTIC ANEURYSM
     Route: 048
     Dates: start: 20170101
  2. BISOPROLOLO MYLAN [Suspect]
     Active Substance: BISOPROLOL FUMARATE
     Indication: HYPERTENSION
     Route: 048
     Dates: start: 20170101

REACTIONS (3)
  - Bradycardia [Recovered/Resolved]
  - Syncope [Recovered/Resolved]
  - Hypotension [Recovered/Resolved]

NARRATIVE: CASE EVENT DATE: 20190530
